FAERS Safety Report 5209494-5 (Version None)
Quarter: 2007Q1

REPORT INFORMATION
  Report Type: 
  Country: None (occurrence: None)
  Receive Date: 20070116
  Receipt Date: 20070107
  Transmission Date: 20070707
  Serious: Yes (Other)
  Sender: FDA-Public Use
  Company Number: CA-ABBOTT-06P-028-0336510-00

PATIENT
  Sex: Female
  Weight: 54.48 kg

DRUGS (13)
  1. HUMIRA [Suspect]
     Indication: FAMILIAL RISK FACTOR
     Route: 058
     Dates: start: 20060609
  2. HUMIRA [Suspect]
     Indication: CHOROIDITIS
  3. PREDNISONE TAB [Concomitant]
     Indication: DRUG USE FOR UNKNOWN INDICATION
  4. CLONAZEPAM [Concomitant]
     Indication: DRUG USE FOR UNKNOWN INDICATION
  5. ESTRACE [Concomitant]
     Indication: DRUG USE FOR UNKNOWN INDICATION
  6. PROGESTERONE [Concomitant]
     Indication: DRUG USE FOR UNKNOWN INDICATION
  7. NORTRIPTYLINE HCL [Concomitant]
     Indication: DRUG USE FOR UNKNOWN INDICATION
  8. LEVOTHYROXINE SODIUM [Concomitant]
     Indication: DRUG USE FOR UNKNOWN INDICATION
  9. DEXEDRINE [Concomitant]
     Indication: FATIGUE
  10. MORPHINE [Concomitant]
     Indication: DRUG USE FOR UNKNOWN INDICATION
     Dosage: 5 TO 10 MILLIGRAMS
  11. CALCIUM [Concomitant]
     Indication: DRUG USE FOR UNKNOWN INDICATION
  12. POTASSIUM ACETATE [Concomitant]
     Indication: DRUG USE FOR UNKNOWN INDICATION
  13. PROCHLORPERAZINE [Concomitant]
     Indication: NAUSEA
     Route: 054

REACTIONS (9)
  - CLONIC CONVULSION [None]
  - FATIGUE [None]
  - HYPOAESTHESIA [None]
  - INSOMNIA [None]
  - MIGRAINE [None]
  - MUSCULAR WEAKNESS [None]
  - NIGHTMARE [None]
  - SLEEP TERROR [None]
  - UNRESPONSIVE TO STIMULI [None]
